FAERS Safety Report 17078003 (Version 1)
Quarter: 2019Q4

REPORT INFORMATION
  Report Type: Spontaneous
  Country: GR (occurrence: GR)
  Receive Date: 20191126
  Receipt Date: 20191126
  Transmission Date: 20200122
  Serious: Yes (Death, Other)
  Sender: FDA-Public Use
  Company Number: GR-CELGENEUS-GRC-20191109082

PATIENT
  Age: 66 Year
  Sex: Male

DRUGS (2)
  1. BLOOD [Concomitant]
     Active Substance: WHOLE BLOOD
     Indication: ACUTE MYELOID LEUKAEMIA
     Route: 041
  2. VIDAZA [Suspect]
     Active Substance: AZACITIDINE
     Indication: ACUTE MYELOID LEUKAEMIA
     Route: 041

REACTIONS (3)
  - Therapy non-responder [Unknown]
  - Cardiac disorder [Fatal]
  - Bone marrow failure [Unknown]
